FAERS Safety Report 14638424 (Version 1)
Quarter: 2018Q1

REPORT INFORMATION
  Report Type: Spontaneous
  Country: US (occurrence: US)
  Receive Date: 20180314
  Receipt Date: 20180314
  Transmission Date: 20180509
  Serious: Yes (Other)
  Sender: FDA-Public Use
  Company Number: None

PATIENT
  Age: 68 Year
  Sex: Female
  Weight: 59.87 kg

DRUGS (6)
  1. CITRACAL [Concomitant]
     Active Substance: CALCIUM CITRATE
  2. FISH OIL [Concomitant]
     Active Substance: FISH OIL
  3. MEMANTINE. [Suspect]
     Active Substance: MEMANTINE
     Indication: CONCUSSION
     Dosage: ONE PILL STARTED ONCE DAILY TO TWICE DAILY MOUTH
     Route: 048
     Dates: start: 20180117, end: 20180122
  4. VITAMIN D [Concomitant]
     Active Substance: CHOLECALCIFEROL
  5. VITAMIN C [Concomitant]
     Active Substance: ASCORBIC ACID
  6. VIT B [Concomitant]
     Active Substance: VITAMIN B

REACTIONS (7)
  - Eye pruritus [None]
  - Restlessness [None]
  - Irritability [None]
  - Emotional disorder [None]
  - Chills [None]
  - Insomnia [None]
  - Headache [None]

NARRATIVE: CASE EVENT DATE: 20180122
